FAERS Safety Report 13442889 (Version 1)
Quarter: 2017Q2

REPORT INFORMATION
  Report Type: Spontaneous
  Country: US (occurrence: US)
  Receive Date: 20170414
  Receipt Date: 20170414
  Transmission Date: 20170830
  Serious: No
  Sender: FDA-Public Use
  Company Number: US-JNJFOC-20151105166

PATIENT
  Sex: Male

DRUGS (3)
  1. RISPERDAL [Suspect]
     Active Substance: RISPERIDONE
     Indication: MENTAL DISORDER
     Dosage: 01 MG; 02 MG; 03 MG
     Route: 048
     Dates: start: 2004, end: 2010
  2. RISPERDAL [Suspect]
     Active Substance: RISPERIDONE
     Indication: POST-TRAUMATIC STRESS DISORDER
     Dosage: 01 MG; 02 MG; 03 MG
     Route: 048
     Dates: start: 2004, end: 2010
  3. RISPERIDONE. [Suspect]
     Active Substance: RISPERIDONE
     Indication: AFFECTIVE DISORDER
     Route: 065

REACTIONS (4)
  - Galactorrhoea [Unknown]
  - Hyperprolactinaemia [Unknown]
  - Abnormal weight gain [Unknown]
  - Gynaecomastia [Unknown]

NARRATIVE: CASE EVENT DATE: 2010
